FAERS Safety Report 4264137-2 (Version None)
Quarter: 2004Q1

REPORT INFORMATION
  Report Type: 
  Country: None (occurrence: None)
  Receive Date: 20040102
  Receipt Date: 20031216
  Transmission Date: 20041129
  Serious: Yes (Hospitalization)
  Sender: FDA-Public Use
  Company Number: 187226

PATIENT
  Age: 58 Year
  Sex: Female
  Weight: 52.1637 kg

DRUGS (7)
  1. AVONEX [Suspect]
     Indication: MULTIPLE SCLEROSIS
     Dosage: 30 MCG QW IM
     Route: 030
     Dates: start: 19970101, end: 20010101
  2. AVONEX [Suspect]
     Indication: MULTIPLE SCLEROSIS
     Dosage: 30 MCG BIW IM
     Route: 030
     Dates: start: 20010101, end: 20030901
  3. AVONEX [Suspect]
     Indication: MULTIPLE SCLEROSIS
     Dosage: 30 MCG BIW IM
     Route: 030
     Dates: start: 20030901
  4. AMBIEN [Concomitant]
  5. TRILEPTAL [Concomitant]
  6. DARVOCET-N 100 [Concomitant]
  7. ANTIVERT [Concomitant]

REACTIONS (4)
  - FOOT FRACTURE [None]
  - INTERVERTEBRAL DISC PROTRUSION [None]
  - SPONDYLOLISTHESIS ACQUIRED [None]
  - SPONDYLOSIS [None]
